FAERS Safety Report 6774993-1 (Version None)
Quarter: 2010Q2

REPORT INFORMATION
  Report Type: 
  Country: None (occurrence: None)
  Receive Date: 20100617
  Receipt Date: 20100426
  Transmission Date: 20101027
  Serious: Yes (Death)
  Sender: FDA-Public Use
  Company Number: A0856752A

PATIENT
  Sex: Male

DRUGS (2)
  1. EPIVIR [Suspect]
     Indication: HEPATITIS B
     Dosage: 150MG PER DAY
     Route: 048
  2. RAPAMUNE [Concomitant]

REACTIONS (1)
  - DEATH [None]
